FAERS Safety Report 8664598 (Version 4)
Quarter: 2013Q3

REPORT INFORMATION
  Report Type: Spontaneous
  Country: US (occurrence: US)
  Receive Date: 20120713
  Receipt Date: 20130911
  Transmission Date: 20140515
  Serious: Yes (Hospitalization, Other)
  Sender: FDA-Public Use
  Company Number: US-BAYER-2012-069481

PATIENT
  Age: 47 Year
  Sex: Female

DRUGS (12)
  1. BETASERON [Suspect]
     Indication: MULTIPLE SCLEROSIS
     Dosage: 0.25 MG, QOD
     Route: 058
     Dates: start: 2007
  2. BETASERON [Suspect]
     Indication: MULTIPLE SCLEROSIS
     Dosage: UNK
     Route: 058
     Dates: start: 20090922, end: 20100222
  3. BETASERON [Suspect]
     Indication: MULTIPLE SCLEROSIS
     Dosage: UNK
     Dates: start: 20100301, end: 201206
  4. BETASERON [Suspect]
     Indication: MULTIPLE SCLEROSIS
     Dosage: 8 MIU, QOD
     Route: 058
     Dates: start: 201207
  5. ALPRAZOLAM [Concomitant]
     Indication: ANXIETY
     Dosage: 5 MG, BID
     Dates: start: 2008
  6. CYMBALTA [Concomitant]
     Indication: ANXIETY
     Dosage: 60 MG, QAM
     Dates: start: 2008
  7. ARICEPT [Concomitant]
  8. SEROQUEL [Concomitant]
     Indication: DEPRESSION
     Dosage: 300 MG, AT 5 PM
     Dates: start: 2008
  9. DONEPEZIL [Concomitant]
     Indication: DEMENTIA ALZHEIMER^S TYPE
     Dosage: 10 MG, AM
     Dates: start: 2008
  10. TRAMADOL [Concomitant]
     Indication: PAIN
     Dosage: 50 MG Q 6 HOURS
     Dates: start: 2010
  11. TYLENOL [PARACETAMOL] [Concomitant]
     Indication: PREMEDICATION
  12. TYLENOL [PARACETAMOL] [Concomitant]
     Indication: PREMEDICATION

REACTIONS (10)
  - Multiple sclerosis relapse [Recovering/Resolving]
  - Hypoaesthesia [Recovering/Resolving]
  - Hemiparesis [Recovering/Resolving]
  - Abasia [Recovering/Resolving]
  - Dyskinesia [Recovering/Resolving]
  - Dysarthria [Recovering/Resolving]
  - Fungal infection [Recovering/Resolving]
  - Multiple sclerosis relapse [Recovered/Resolved]
  - Speech disorder [Recovered/Resolved]
  - Convulsion [Recovered/Resolved]
